FAERS Safety Report 25886842 (Version 1)
Quarter: 2025Q4

REPORT INFORMATION
  Report Type: Spontaneous
  Country: US (occurrence: None)
  Receive Date: 20251006
  Receipt Date: 20251006
  Transmission Date: 20260118
  Serious: No
  Sender: FDA-CTU
  Company Number: None

PATIENT
  Age: 61 Year
  Sex: Female
  Weight: 94.5 kg

DRUGS (16)
  1. ARIPIPRAZOLE [Suspect]
     Active Substance: ARIPIPRAZOLE
     Indication: Depression
     Dosage: FREQUENCY : DAILY;?
     Route: 048
  2. ACETAMINOPHEN [Concomitant]
     Active Substance: ACETAMINOPHEN
  3. CLONAZEPAM [Concomitant]
     Active Substance: CLONAZEPAM
  4. FENOFIBRATE [Concomitant]
     Active Substance: FENOFIBRATE
  5. GABAPENTIN [Concomitant]
     Active Substance: GABAPENTIN
  6. METFORMIN HYDROCHLORIDE [Concomitant]
     Active Substance: METFORMIN HYDROCHLORIDE
  7. ER [Concomitant]
  8. NIFEDIPINE [Concomitant]
     Active Substance: NIFEDIPINE
  9. PIOGLITAZONE [Concomitant]
     Active Substance: PIOGLITAZONE
  10. CALCIUM ACETATE [Concomitant]
     Active Substance: CALCIUM ACETATE
  11. ERGOCALCIFEROL [Concomitant]
     Active Substance: ERGOCALCIFEROL
  12. cyanocbolomin [Concomitant]
  13. magnesiu [Concomitant]
  14. VITAMINS [Concomitant]
     Active Substance: VITAMINS
  15. ribovlavin [Concomitant]
  16. OMEPRAZOLE [Concomitant]
     Active Substance: OMEPRAZOLE

REACTIONS (30)
  - Pruritus [None]
  - Urticaria [None]
  - Swelling face [None]
  - Pharyngeal swelling [None]
  - Mouth swelling [None]
  - Dental paraesthesia [None]
  - Anxiety [None]
  - Hyperglycaemia [None]
  - Hypertension [None]
  - Dizziness [None]
  - Dizziness [None]
  - Somnolence [None]
  - Suicidal ideation [None]
  - Irritability [None]
  - Restlessness [None]
  - Cough [None]
  - Oropharyngeal pain [None]
  - Pain [None]
  - Hunger [None]
  - Pollakiuria [None]
  - Dehydration [None]
  - Eye movement disorder [None]
  - Tongue movement disturbance [None]
  - Trismus [None]
  - Hyperhidrosis [None]
  - Musculoskeletal stiffness [None]
  - Drooling [None]
  - Headache [None]
  - Nausea [None]
  - Vomiting [None]

NARRATIVE: CASE EVENT DATE: 20250924
